FAERS Safety Report 8029179-X (Version None)
Quarter: 2012Q1

REPORT INFORMATION
  Report Type: 
  Country: None (occurrence: None)
  Receive Date: 20120106
  Receipt Date: 20120103
  Transmission Date: 20120608
  Serious: Yes (Hospitalization)
  Sender: FDA-Public Use
  Company Number: PHEH2012US000525

PATIENT
  Sex: Male

DRUGS (1)
  1. VALTURNA [Suspect]
     Dosage: UNK UKN, UNK

REACTIONS (1)
  - RENAL DISORDER [None]
